FAERS Safety Report 19405406 (Version 1)
Quarter: 2021Q2

REPORT INFORMATION
  Report Type: Report from Study
  Country: GB (occurrence: GB)
  Receive Date: 20210611
  Receipt Date: 20210611
  Transmission Date: 20210717
  Serious: Yes (Other)
  Sender: FDA-Public Use
  Company Number: GB-MYLANLABS-2021M1033540

PATIENT
  Age: 56 Year
  Sex: Female

DRUGS (31)
  1. DOCETAXEL. [Suspect]
     Active Substance: DOCETAXEL
     Dosage: 88 MILLIGRAM
     Route: 042
     Dates: start: 20170126, end: 20180216
  2. DOCETAXEL. [Suspect]
     Active Substance: DOCETAXEL
     Dosage: 108 MILLIGRAM
     Route: 042
     Dates: start: 20161206, end: 20170126
  3. TRASTUZUMAB. [Suspect]
     Active Substance: TRASTUZUMAB
     Indication: BREAST CANCER METASTATIC
     Dosage: 525 MILLIGRAM
     Route: 042
     Dates: start: 20161206, end: 20180208
  4. PACLITAXEL. [Suspect]
     Active Substance: PACLITAXEL
     Indication: BREAST CANCER METASTATIC
     Dosage: 162 MILLIGRAM
     Route: 042
     Dates: start: 20210326
  5. AMOXICILLIN. [Concomitant]
     Active Substance: AMOXICILLIN
     Dosage: 500 MILLIGRAM, TID
     Route: 048
     Dates: start: 20191014, end: 20191021
  6. TRANEXAMIC ACID. [Concomitant]
     Active Substance: TRANEXAMIC ACID
     Dosage: 1 GRAM, TID
     Route: 048
     Dates: start: 20210104, end: 20210104
  7. CLOTRIMAZOLE. [Concomitant]
     Active Substance: CLOTRIMAZOLE
     Dosage: UNK
  8. PERTUZUMAB. [Suspect]
     Active Substance: PERTUZUMAB
     Indication: BREAST CANCER METASTATIC
     Dosage: 420 MILLIGRAM
     Route: 042
     Dates: start: 20161206, end: 20180208
  9. CETIRIZINE [Concomitant]
     Active Substance: CETIRIZINE HYDROCHLORIDE
     Dosage: 10 MILLIGRAM, QD
     Route: 048
     Dates: start: 20180415, end: 20180421
  10. LISINOPRIL. [Concomitant]
     Active Substance: LISINOPRIL
     Dosage: 2.5 MILLIGRAM, QD
     Route: 048
     Dates: start: 20200928
  11. NITROFURANTOIN. [Concomitant]
     Active Substance: NITROFURANTOIN
     Dosage: 100 MILLIGRAM, QD
     Route: 048
     Dates: start: 20201221, end: 20201228
  12. COVID?19 VACCINE [Concomitant]
     Dosage: UNK
  13. TRASTUZUMAB. [Suspect]
     Active Substance: TRASTUZUMAB
     Dosage: LOADING DOSE 1ST CYCLE
     Route: 042
     Dates: start: 20161115, end: 20161115
  14. TRASTUZUMAB EMTANSINE [Suspect]
     Active Substance: ADO-TRASTUZUMAB EMTANSINE
     Indication: BREAST CANCER METASTATIC
     Dosage: 320 MILLIGRAM
     Route: 042
     Dates: start: 20200824, end: 20210209
  15. TRASTUZUMAB EMTANSINE [Suspect]
     Active Substance: ADO-TRASTUZUMAB EMTANSINE
     Dosage: 320 MILLIGRAM
     Route: 042
     Dates: start: 20200824
  16. AMOXICILLIN. [Concomitant]
     Active Substance: AMOXICILLIN
     Dosage: 500 UNK
     Route: 048
     Dates: start: 20190125, end: 20190129
  17. DEXAMETHASONE. [Concomitant]
     Active Substance: DEXAMETHASONE
     Dosage: 16 MILLIGRAM
     Route: 048
     Dates: start: 20161124, end: 20170216
  18. DEXAMETHASONE. [Concomitant]
     Active Substance: DEXAMETHASONE
     Dosage: 16 MILLIGRAM
     Route: 048
     Dates: start: 201712, end: 20200506
  19. PREDNISOLONE. [Concomitant]
     Active Substance: PREDNISOLONE
     Dosage: UNK
  20. TRASTUZUMAB. [Suspect]
     Active Substance: TRASTUZUMAB
     Dosage: 600 MILLIGRAM, Q3W
     Route: 058
  21. FLUCLOXACILLIN [Concomitant]
     Active Substance: FLUCLOXACILLIN
     Dosage: 2 GRAM, QID
     Route: 048
     Dates: start: 20210409, end: 20210413
  22. CAPECITABINE. [Suspect]
     Active Substance: CAPECITABINE
     Indication: BREAST CANCER METASTATIC
     Dosage: 1800 MILLIGRAM, BID
     Route: 048
     Dates: start: 20190730, end: 20200728
  23. DOCETAXEL. [Suspect]
     Active Substance: DOCETAXEL
     Indication: BREAST CANCER METASTATIC
     Dosage: 148 MILLIGRAM
     Route: 042
     Dates: start: 20161114, end: 20161114
  24. DIFFLAM [Concomitant]
     Dosage: 10 MILLILITER, QID
     Route: 048
     Dates: start: 20161206, end: 201703
  25. FLUCLOXACILLIN [Concomitant]
     Active Substance: FLUCLOXACILLIN
     Dosage: 500 MILLIGRAM, QID
     Route: 048
     Dates: start: 20180628, end: 20180704
  26. CAPECITABINE. [Suspect]
     Active Substance: CAPECITABINE
     Dosage: 2500 MILLIGRAM, BID
     Route: 048
     Dates: start: 20180405, end: 20180405
  27. CAPECITABINE. [Suspect]
     Active Substance: CAPECITABINE
     Dosage: 1950 MILLIGRAM, BID
     Route: 048
     Dates: start: 20180426, end: 20180709
  28. PERTUZUMAB. [Suspect]
     Active Substance: PERTUZUMAB
     Dosage: 840 MILLIGRAM
     Route: 042
     Dates: start: 20161115, end: 20161115
  29. CITALOPRAM [Concomitant]
     Active Substance: CITALOPRAM HYDROBROMIDE
     Dosage: 10 MILLIGRAM, BID
     Route: 048
     Dates: start: 201707, end: 20180115
  30. LOPERAMIDE [Concomitant]
     Active Substance: LOPERAMIDE
     Dosage: UNK
     Route: 048
     Dates: start: 20171206, end: 2017
  31. VITAMIN D                          /00107901/ [Concomitant]
     Active Substance: ERGOCALCIFEROL
     Dosage: UNK

REACTIONS (1)
  - Vascular device infection [Recovered/Resolved]

NARRATIVE: CASE EVENT DATE: 20210408
